FAERS Safety Report 7424529-7 (Version None)
Quarter: 2011Q2

REPORT INFORMATION
  Report Type: 
  Country: None (occurrence: None)
  Receive Date: 20110419
  Receipt Date: 20110408
  Transmission Date: 20111010
  Serious: Yes (Hospitalization, Disabling, Other)
  Sender: FDA-Public Use
  Company Number: MX-SANOFI-AVENTIS-2011SA021885

PATIENT
  Age: 46 Year
  Sex: Female
  Weight: 60 kg

DRUGS (3)
  1. EYE DROPS [Concomitant]
  2. EYE DROPS [Concomitant]
     Indication: DRY EYE
  3. INSULIN GLARGINE [Suspect]
     Indication: TYPE 2 DIABETES MELLITUS
     Route: 058
     Dates: start: 20100324

REACTIONS (5)
  - INFLAMMATION [None]
  - GAIT DISTURBANCE [None]
  - RETINAL DETACHMENT [None]
  - HYPERTENSION [None]
  - FLUID RETENTION [None]
